FAERS Safety Report 11631257 (Version 2)
Quarter: 2018Q1

REPORT INFORMATION
  Report Type: Report from Study
  Country: None (occurrence: BR)
  Receive Date: 20151014
  Receipt Date: 20180321
  Transmission Date: 20180508
  Serious: Yes (Hospitalization, Disabling, Other)
  Sender: FDA-Public Use
  Company Number: BR-ABBVIE-15K-020-1478495-00

PATIENT
  Sex: Female
  Weight: 50 kg

DRUGS (1)
  1. HUMIRA [Suspect]
     Active Substance: ADALIMUMAB
     Indication: RHEUMATOID ARTHRITIS
     Route: 058
     Dates: start: 20000101, end: 2018

REACTIONS (9)
  - Lower limb fracture [Recovered/Resolved]
  - Mass [Unknown]
  - Visual impairment [Unknown]
  - Dizziness [Recovering/Resolving]
  - Musculoskeletal stiffness [Recovered/Resolved]
  - Fall [Recovering/Resolving]
  - Osteoporosis [Unknown]
  - Pain [Recovered/Resolved]
  - Calcinosis [Unknown]

NARRATIVE: CASE EVENT DATE: 2015
